FAERS Safety Report 9205798 (Version 2)
Quarter: 2013Q2

REPORT INFORMATION
  Report Type: Spontaneous
  Country: US (occurrence: None)
  Receive Date: 20120731
  Receipt Date: 20121130
  Transmission Date: 20140414
  Serious: Yes (Hospitalization, Other)
  Sender: FDA-Public Use
  Company Number: US201206000363

PATIENT
  Sex: Male

DRUGS (11)
  1. BYDUREON [Suspect]
     Indication: TYPE 2 DIABETES MELLITUS
     Route: 058
     Dates: start: 20120514, end: 20120529
  2. LEVEMIR (INSULIN DETEMIR) [Concomitant]
  3. INSULIN (INSULIN) [Concomitant]
  4. DIGOXIN (DIGOXIN) [Concomitant]
  5. NOVOLOG MIX 70/30 [Concomitant]
  6. ALLOPURINOL (ALLOPURINOL) [Concomitant]
  7. COUMADIN (WARFARIN SODIUM) [Concomitant]
  8. LEXAPRO (ESCITALOPRAM OXALATE) [Concomitant]
  9. COZAAR (LOSARTAN POTASSIUM) (50 MILLIGRAM, TABLETS) (LOSARTAN POTASSIUM) [Concomitant]
  10. NORVASC (AMLODIPINE BESILATE) [Concomitant]
  11. LIPID MODIFYING AGENTS, COMBINATIONS [Concomitant]

REACTIONS (2)
  - Pancreatitis [None]
  - Off label use [None]
